FAERS Safety Report 4398689-9 (Version None)
Quarter: 2004Q3

REPORT INFORMATION
  Report Type: 
  Country: None (occurrence: None)
  Receive Date: 20040712
  Receipt Date: 20040628
  Transmission Date: 20050211
  Serious: No
  Sender: FDA-Public Use
  Company Number: 04P-114-0262758-00

PATIENT
  Age: 51 Year
  Sex: Male

DRUGS (1)
  1. DEPAKENE [Suspect]
     Indication: EPILEPSY
     Dosage: ORAL
     Route: 048

REACTIONS (3)
  - CONDITION AGGRAVATED [None]
  - EPILEPSY [None]
  - PHARMACEUTICAL PRODUCT COMPLAINT [None]
